FAERS Safety Report 6060904-3 (Version None)
Quarter: 2009Q1

REPORT INFORMATION
  Report Type: 
  Country: None (occurrence: None)
  Receive Date: 20090202
  Receipt Date: 20090121
  Transmission Date: 20090719
  Serious: Yes (Other)
  Sender: FDA-Public Use
  Company Number: PT-BAYER-200912248GPV

PATIENT
  Age: 62 Year
  Sex: Male
  Weight: 83 kg

DRUGS (4)
  1. NEXAVAR [Suspect]
     Indication: HEPATIC NEOPLASM MALIGNANT
     Dosage: AS USED: 200 MG
     Route: 048
     Dates: start: 20081025, end: 20081031
  2. PERINDOPRIL ERBUMINE [Concomitant]
     Indication: HYPERTENSION
     Route: 048
     Dates: start: 20060101, end: 20080601
  3. PERINDOPRIL ERBUMINE [Concomitant]
     Route: 048
  4. GLIMEPIRIDE [Concomitant]
     Indication: TYPE 2 DIABETES MELLITUS
     Route: 048
     Dates: start: 20060101

REACTIONS (9)
  - BLISTER [None]
  - CHEST PAIN [None]
  - ERYTHEMA [None]
  - HYPERTENSION [None]
  - PAIN [None]
  - PALMAR-PLANTAR ERYTHRODYSAESTHESIA SYNDROME [None]
  - PARAESTHESIA [None]
  - SKIN EXFOLIATION [None]
  - SKIN ULCER [None]
